FAERS Safety Report 24966622 (Version 1)
Quarter: 2025Q1

REPORT INFORMATION
  Report Type: Report from Study
  Country: CA (occurrence: CA)
  Receive Date: 20250213
  Receipt Date: 20250213
  Transmission Date: 20250409
  Serious: Yes (Hospitalization, Other)
  Sender: SANDOZ
  Company Number: CA-SANDOZ-SDZ2024CA035225

PATIENT
  Sex: Female

DRUGS (2)
  1. HYRIMOZ [Suspect]
     Active Substance: ADALIMUMAB-ADAZ
     Indication: Rheumatoid arthritis
     Dosage: 40 MG, Q2W
     Route: 058
     Dates: start: 20240312
  2. METHOTREXATE [Concomitant]
     Active Substance: METHOTREXATE
     Indication: Product used for unknown indication
     Route: 065

REACTIONS (12)
  - Bladder cancer [Unknown]
  - Ill-defined disorder [Unknown]
  - Renal pain [Unknown]
  - Fear of injection [Not Recovered/Not Resolved]
  - Gait disturbance [Unknown]
  - Walking aid user [Unknown]
  - Visual impairment [Unknown]
  - Hypoaesthesia [Unknown]
  - Abdominal discomfort [Unknown]
  - Headache [Unknown]
  - Abdominal pain upper [Unknown]
  - Product dose omission issue [Unknown]
